FAERS Safety Report 24863558 (Version 1)
Quarter: 2025Q1

REPORT INFORMATION
  Report Type: Spontaneous
  Country: US (occurrence: US)
  Receive Date: 20250120
  Receipt Date: 20250120
  Transmission Date: 20250408
  Serious: Yes (Death, Hospitalization, Other)
  Sender: PFIZER
  Company Number: US-PFIZER INC-202500012452

PATIENT
  Age: 76 Year
  Sex: Female

DRUGS (6)
  1. METOPROLOL TARTRATE [Suspect]
     Active Substance: METOPROLOL TARTRATE
     Route: 051
  2. METOPROLOL TARTRATE [Suspect]
     Active Substance: METOPROLOL TARTRATE
     Route: 048
  3. OXYCODONE AND ACETAMINOPHEN [Suspect]
     Active Substance: ACETAMINOPHEN\OXYCODONE HYDROCHLORIDE
     Route: 048
  4. OXYCODONE AND ACETAMINOPHEN [Suspect]
     Active Substance: ACETAMINOPHEN\OXYCODONE HYDROCHLORIDE
     Route: 051
  5. INSULIN DEGLUDEC [Suspect]
     Active Substance: INSULIN DEGLUDEC
     Route: 048
  6. INSULIN DEGLUDEC [Suspect]
     Active Substance: INSULIN DEGLUDEC
     Route: 051

REACTIONS (1)
  - Completed suicide [Fatal]

NARRATIVE: CASE EVENT DATE: 20230101
